FAERS Safety Report 6779187-1 (Version None)
Quarter: 2010Q2

REPORT INFORMATION
  Report Type: 
  Country: None (occurrence: None)
  Receive Date: 20100618
  Receipt Date: 20100609
  Transmission Date: 20101027
  Serious: Yes (Hospitalization)
  Sender: FDA-Public Use
  Company Number: PL-ROCHE-697889

PATIENT
  Sex: Female
  Weight: 81 kg

DRUGS (2)
  1. ROACTEMRA [Suspect]
     Indication: RHEUMATOID ARTHRITIS
     Dosage: RECEIVED 05 DOSES, LAST DOSE RECEIVED ON 26 MARCH 2010, FORM: DRIP INFUSION
     Route: 042
     Dates: start: 20091119, end: 20100326
  2. KETONAL [Concomitant]
     Indication: RHEUMATOID ARTHRITIS
     Route: 048
     Dates: start: 20100301

REACTIONS (2)
  - DISEASE PROGRESSION [None]
  - PYREXIA [None]
